FAERS Safety Report 15805383 (Version 1)
Quarter: 2019Q1

REPORT INFORMATION
  Report Type: Spontaneous
  Country: DE (occurrence: DE)
  Receive Date: 20190110
  Receipt Date: 20190110
  Transmission Date: 20190417
  Serious: Yes (Life-Threatening, Hospitalization)
  Sender: FDA-Public Use
  Company Number: DE-TEVA-2019-DE-996922

PATIENT
  Age: 24 Year
  Sex: Male
  Weight: 86 kg

DRUGS (6)
  1. VINCRISTIN [Concomitant]
     Active Substance: VINCRISTINE
     Indication: EWING^S SARCOMA
     Route: 042
     Dates: start: 20180914, end: 20181120
  2. DOXORUBICIN [Suspect]
     Active Substance: DOXORUBICIN
     Indication: EWING^S SARCOMA
     Route: 042
     Dates: start: 20180914, end: 20181123
  3. IFOSFAMID 36 G/M? [Concomitant]
     Indication: EWING^S SARCOMA
     Route: 042
     Dates: start: 20180914, end: 20181123
  4. ETOPOSID [Concomitant]
     Active Substance: ETOPOSIDE
     Indication: EWING^S SARCOMA
     Route: 042
     Dates: start: 20180914, end: 20181123
  5. CHLORELLA NOS (DIETARY SUPPLEMENT) [Suspect]
     Active Substance: DIETARY SUPPLEMENT
     Route: 048
  6. SPIRULINA [Suspect]
     Active Substance: SPIRULINA
     Route: 048

REACTIONS (4)
  - Ejection fraction decreased [Not Recovered/Not Resolved]
  - Cardiomyopathy [Not Recovered/Not Resolved]
  - Cardiac failure acute [Not Recovered/Not Resolved]
  - Syncope [Not Recovered/Not Resolved]

NARRATIVE: CASE EVENT DATE: 20181124
